FAERS Safety Report 5328080-X (Version None)
Quarter: 2007Q2

REPORT INFORMATION
  Report Type: 
  Country: None (occurrence: None)
  Receive Date: 20070517
  Receipt Date: 20070514
  Transmission Date: 20071010
  Serious: Yes (Other)
  Sender: FDA-Public Use
  Company Number: AU-MERCK-0705AUS00127

PATIENT
  Age: 76 Year

DRUGS (2)
  1. ZOCOR [Suspect]
     Route: 048
  2. ZOCOR [Suspect]
     Route: 048

REACTIONS (3)
  - BLOOD CREATINE PHOSPHOKINASE INCREASED [None]
  - MYOPATHY [None]
  - RENAL FAILURE ACUTE [None]
